FAERS Safety Report 24162672 (Version 1)
Quarter: 2024Q3

REPORT INFORMATION
  Report Type: Other
  Country: CA (occurrence: CA)
  Receive Date: 20240801
  Receipt Date: 20240801
  Transmission Date: 20241016
  Serious: Yes (Hospitalization, Other)
  Sender: APOTEX
  Company Number: CA-APOTEX-2024AP008905

PATIENT
  Age: 84 Year
  Sex: Female
  Weight: 29.025 kg

DRUGS (2)
  1. ZOLEDRONIC ACID [Suspect]
     Active Substance: ZOLEDRONIC ACID
     Indication: Osteoporosis postmenopausal
     Dosage: 5 MILLIGRAM, 1 EVERY 1 YEARS
     Route: 042
  2. SPIRIVA [Concomitant]
     Active Substance: TIOTROPIUM BROMIDE MONOHYDRATE
     Indication: Product used for unknown indication
     Dosage: UNK
     Route: 065

REACTIONS (4)
  - Broncholithiasis [Unknown]
  - Intestinal mass [Unknown]
  - Surgery [Unknown]
  - Dyspnoea [Unknown]
